FAERS Safety Report 25771848 (Version 2)
Quarter: 2025Q3

REPORT INFORMATION
  Report Type: Spontaneous
  Country: EU (occurrence: EU)
  Receive Date: 20250908
  Receipt Date: 20250922
  Transmission Date: 20251021
  Serious: Yes (Life-Threatening, Hospitalization)
  Sender: TEVA
  Company Number: EU-TEVA-VS-3369370

PATIENT
  Age: 60 Year
  Sex: Female

DRUGS (2)
  1. BISOPROLOL [Suspect]
     Active Substance: BISOPROLOL
     Indication: Cardiac failure
     Route: 065
     Dates: start: 2024
  2. TICAGRELOR [Concomitant]
     Active Substance: TICAGRELOR
     Indication: Antiplatelet therapy
     Route: 065

REACTIONS (1)
  - Drug ineffective [Unknown]

NARRATIVE: CASE EVENT DATE: 20240101
